FAERS Safety Report 6271911-X (Version None)
Quarter: 2009Q3

REPORT INFORMATION
  Report Type: 
  Country: None (occurrence: None)
  Receive Date: 20090717
  Receipt Date: 20090709
  Transmission Date: 20100115
  Serious: Yes (Other)
  Sender: FDA-Public Use
  Company Number: US-ASTRAZENECA-2009UW19335

PATIENT
  Age: 18 Year
  Sex: Male

DRUGS (4)
  1. ENTOCORT EC [Suspect]
     Indication: CROHN'S DISEASE
     Route: 048
  2. AZASAN [Concomitant]
  3. PENTASA [Concomitant]
  4. CIPRO [Concomitant]

REACTIONS (1)
  - CATARACT [None]
